FAERS Safety Report 6240402-4 (Version None)
Quarter: 2009Q2

REPORT INFORMATION
  Report Type: 
  Country: None (occurrence: None)
  Receive Date: 20090623
  Receipt Date: 20090616
  Transmission Date: 20091009
  Serious: Yes (Other)
  Sender: FDA-Public Use
  Company Number: US-JNJFOC-20080803656

PATIENT
  Sex: Male
  Weight: 77.11 kg

DRUGS (1)
  1. ARESTIN [Suspect]
     Indication: DRUG USE FOR UNKNOWN INDICATION
     Dosage: 3 PLACEMENTS
     Route: 004

REACTIONS (3)
  - DRUG HYPERSENSITIVITY [None]
  - DYSPNOEA [None]
  - SKIN EXFOLIATION [None]
